FAERS Safety Report 20736978 (Version 2)
Quarter: 2022Q2

REPORT INFORMATION
  Report Type: Spontaneous
  Country: US (occurrence: US)
  Receive Date: 20220421
  Receipt Date: 20220623
  Transmission Date: 20220721
  Serious: Yes (Other)
  Sender: FDA-Public Use
  Company Number: US-AURINIA PHARMACEUTICALS INC.-AUR-001302

PATIENT
  Sex: Female

DRUGS (1)
  1. LUPKYNIS [Suspect]
     Active Substance: VOCLOSPORIN
     Indication: Lupus nephritis
     Dosage: 23.7 MILLIGRAM, BID
     Route: 048
     Dates: start: 20220330, end: 20220617

REACTIONS (3)
  - Blood pressure increased [Not Recovered/Not Resolved]
  - Neck pain [Not Recovered/Not Resolved]
  - Headache [Not Recovered/Not Resolved]
